FAERS Safety Report 4673022-3 (Version None)
Quarter: 2005Q2

REPORT INFORMATION
  Report Type: 
  Country: None (occurrence: None)
  Receive Date: 20050524
  Receipt Date: 20050510
  Transmission Date: 20051028
  Serious: Yes (Hospitalization)
  Sender: FDA-Public Use
  Company Number: 2005072237

PATIENT
  Age: 46 Year
  Sex: Female

DRUGS (6)
  1. CELEBREX [Suspect]
     Indication: OSTEOARTHRITIS
     Dosage: 200 MG ORAL
     Route: 048
  2. OMEPRAZOLE [Concomitant]
  3. FLUOXETINE [Concomitant]
  4. DERINOX (CETRIMONIUM BROMIDE, NAPHAZOLINE NITRATE, PHENYLEPHRINE HYDRO [Concomitant]
  5. PANOTILE (FLUDROCORTISONE ACETATE, LIDOCAINE HYDROCHLORIDE, NEOMYCIN S [Concomitant]
  6. DIACEREIN (DIACEREIN) [Concomitant]

REACTIONS (1)
  - ANAPHYLACTIC SHOCK [None]
